FAERS Safety Report 6283434-2 (Version None)
Quarter: 2009Q4

REPORT INFORMATION
  Report Type: 
  Country: None (occurrence: None)
  Receive Date: 20090721
  Receipt Date: 20090721
  Transmission Date: 20100525
  Serious: No
  Sender: FDA-Public Use
  Company Number: None

PATIENT
  Age: 43 Year
  Sex: Female

DRUGS (1)
  1. METHYLDOPA [Suspect]
     Dosage: 125 MG PO TWICE DAILY
     Route: 048
     Dates: start: 20070529, end: 20070614

REACTIONS (5)
  - DRUG EXPOSURE DURING PREGNANCY [None]
  - HEADACHE [None]
  - HEPATITIS ACUTE [None]
  - LIVER INJURY [None]
  - TACHYCARDIA [None]
